FAERS Safety Report 20151145 (Version 1)
Quarter: 2021Q4

REPORT INFORMATION
  Report Type: Other
  Country: GB (occurrence: GB)
  Receive Date: 20211206
  Receipt Date: 20211206
  Transmission Date: 20220303
  Serious: Yes (Life-Threatening, Hospitalization, Disabling, Other)
  Sender: FDA-Public Use
  Company Number: None

PATIENT

DRUGS (7)
  1. MOMETASONE FUROATE [Suspect]
     Active Substance: MOMETASONE FUROATE
     Indication: Dermatitis atopic
     Dosage: TWICE DAILY AS AND WHEN NEEDED (ON AND OFF, NEVER LONGER THAN 2 WEEKS)
     Route: 061
     Dates: start: 201910, end: 202101
  2. BETAMETHASONE [Suspect]
     Active Substance: BETAMETHASONE
     Indication: Dermatitis atopic
     Dosage: TWICE DAILY AS AND WHEN REQUIRED (ON AND OFF, 3 YEAR BREAK BETWEEN 2017 AND 2020).
     Route: 061
     Dates: start: 201609, end: 202009
  3. BETNOVATE [Suspect]
     Active Substance: BETAMETHASONE
     Indication: Dermatitis atopic
     Dosage: TWICE DAILY AS AND WHEN REQUIRED. ON AND OFF
     Route: 061
     Dates: start: 201509, end: 201604
  4. CLOBETASONE [Suspect]
     Active Substance: CLOBETASONE
     Indication: Dermatitis atopic
     Dosage: TWICE DAILY AS AND WHEN NEEDED (ON AND OFF, NEVER LONGER THAN 2 WEEKS)
     Route: 061
     Dates: start: 201710, end: 201807
  5. EUMOVATE [Suspect]
     Active Substance: CLOBETASONE BUTYRATE
     Indication: Dermatitis atopic
     Dosage: TWICE DAILY AS AND WHEN NEEDED (ON AND OFF, NEVER LONGER THAN 2 WEEKS)
     Route: 061
     Dates: start: 201701, end: 201710
  6. PREDNISOLONE [Suspect]
     Active Substance: PREDNISOLONE
     Indication: Dermatitis atopic
     Dosage: NEVER FOR LONGER THAN A WEEK, ON AND OFF. LONG BREAK FROM 2018 TO 2021.
     Route: 048
     Dates: start: 201801, end: 202103
  7. TACROLIMUS [Suspect]
     Active Substance: TACROLIMUS
     Indication: Dermatitis atopic
     Dosage: UNK UNK, PRN
     Route: 061
     Dates: start: 201805, end: 202103

REACTIONS (14)
  - Erythema [Not Recovered/Not Resolved]
  - Skin exfoliation [Not Recovered/Not Resolved]
  - Skin weeping [Not Recovered/Not Resolved]
  - Insomnia [Not Recovered/Not Resolved]
  - Vasculitis [Not Recovered/Not Resolved]
  - Lymphadenitis [Not Recovered/Not Resolved]
  - Immobile [Unknown]
  - Dermatitis [Not Recovered/Not Resolved]
  - Constipation [Unknown]
  - Suicidal ideation [Unknown]
  - Pruritus [Not Recovered/Not Resolved]
  - Pain [Unknown]
  - Scab [Unknown]
  - Asthenia [Unknown]

NARRATIVE: CASE EVENT DATE: 20210328
